FAERS Safety Report 6171138-6 (Version None)
Quarter: 2009Q2

REPORT INFORMATION
  Report Type: 
  Country: None (occurrence: None)
  Receive Date: 20090428
  Receipt Date: 20090428
  Transmission Date: 20091009
  Serious: Yes (Other)
  Sender: FDA-Public Use
  Company Number: None

PATIENT
  Age: 53 Year
  Sex: Female
  Weight: 81.6475 kg

DRUGS (1)
  1. REQUIP [Suspect]
     Indication: RESTLESS LEGS SYNDROME
     Dosage: ONE PILL ONCE A D AY PO
     Route: 048
     Dates: start: 20060401, end: 20070928

REACTIONS (4)
  - ARTHRALGIA [None]
  - CONSTIPATION [None]
  - DEPRESSION [None]
  - PATHOLOGICAL GAMBLING [None]
